FAERS Safety Report 4375096-6 (Version None)
Quarter: 2004Q2

REPORT INFORMATION
  Report Type: 
  Country: None (occurrence: None)
  Receive Date: 20040604
  Receipt Date: 20040519
  Transmission Date: 20050107
  Serious: Yes (Other)
  Sender: FDA-Public Use
  Company Number: 206814

PATIENT
  Age: 35 Year
  Sex: Female
  Weight: 111 kg

DRUGS (3)
  1. HERCEPTIN [Suspect]
     Indication: BREAST CANCER METASTATIC
     Dosage: INTRAVENOUS
     Route: 042
     Dates: start: 20040219
  2. TAXOTERE [Concomitant]
  3. TAMOXIFEN CITRATE [Concomitant]

REACTIONS (4)
  - BREECH DELIVERY [None]
  - DRUG EXPOSURE DURING PREGNANCY [None]
  - METASTASES TO LIVER [None]
  - PREMATURE BABY [None]
